FAERS Safety Report 10408482 (Version 1)
Quarter: 2014Q3

REPORT INFORMATION
  Report Type: Spontaneous
  Country: JP (occurrence: None)
  Receive Date: 20140821
  Receipt Date: 20140821
  Transmission Date: 20150326
  Serious: Yes (Death, Hospitalization)
  Sender: FDA-Public Use
  Company Number: INT_00394_2014

PATIENT
  Age: 41 Year
  Sex: Male

DRUGS (7)
  1. CISPLATIN (CISPLATIN) (HQ SPECIALTY) [Suspect]
     Active Substance: CISPLATIN
     Indication: METASTASES TO CENTRAL NERVOUS SYSTEM
  2. GEMCITABINE [Suspect]
     Active Substance: GEMCITABINE\GEMCITABINE HYDROCHLORIDE
     Indication: NON-SMALL CELL LUNG CANCER
  3. CISPLATIN (CISPLATIN) (HQ SPECIALTY) [Suspect]
     Active Substance: CISPLATIN
     Indication: NON-SMALL CELL LUNG CANCER
  4. BENIDIPINE [Concomitant]
     Active Substance: BENIDIPINE
  5. GEMCITABINE [Suspect]
     Active Substance: GEMCITABINE\GEMCITABINE HYDROCHLORIDE
     Indication: METASTASES TO CENTRAL NERVOUS SYSTEM
  6. RABEPRAZOLE [Concomitant]
     Active Substance: RABEPRAZOLE
  7. CARBOCISTEINE [Concomitant]
     Active Substance: CARBOCYSTEINE

REACTIONS (8)
  - Leukocytosis [None]
  - General physical health deterioration [None]
  - Renal impairment [None]
  - Acute myocardial infarction [None]
  - Toxicity to various agents [None]
  - Coronary artery embolism [None]
  - Anaemia [None]
  - Coronary artery thrombosis [None]
